FAERS Safety Report 11516759 (Version 1)
Quarter: 2015Q3

REPORT INFORMATION
  Report Type: Spontaneous
  Country: FR (occurrence: FR)
  Receive Date: 20150917
  Receipt Date: 20150917
  Transmission Date: 20151125
  Serious: Yes (Hospitalization)
  Sender: FDA-Public Use
  Company Number: FR-VIIV HEALTHCARE LIMITED-FR2015GSK131771

PATIENT
  Age: 7 Month

DRUGS (5)
  1. KALETRA [Suspect]
     Active Substance: LOPINAVIR\RITONAVIR
     Indication: HUMAN IMMUNODEFICIENCY VIRUS TRANSMISSION
     Dosage: UNK
     Dates: start: 20150612
  2. KALETRA [Suspect]
     Active Substance: LOPINAVIR\RITONAVIR
     Dosage: UNK
     Route: 048
     Dates: start: 20150622, end: 20150622
  3. RETROVIR [Suspect]
     Active Substance: ZIDOVUDINE
     Dosage: UNK
     Route: 048
     Dates: start: 20150622, end: 20150622
  4. EPIVIR [Concomitant]
     Active Substance: LAMIVUDINE
     Indication: HUMAN IMMUNODEFICIENCY VIRUS TRANSMISSION
     Dosage: 2.5 ML, BID
     Dates: start: 20150612
  5. RETROVIR [Suspect]
     Active Substance: ZIDOVUDINE
     Indication: HUMAN IMMUNODEFICIENCY VIRUS TRANSMISSION
     Dosage: UNK
     Dates: start: 20150612

REACTIONS (2)
  - Medication error [Unknown]
  - Incorrect dose administered [Unknown]

NARRATIVE: CASE EVENT DATE: 20150622
